FAERS Safety Report 18224385 (Version 1)
Quarter: 2020Q3

REPORT INFORMATION
  Report Type: Spontaneous
  Country: DE (occurrence: DE)
  Receive Date: 20200902
  Receipt Date: 20200902
  Transmission Date: 20201103
  Serious: Yes (Hospitalization)
  Sender: FDA-Public Use
  Company Number: DE-PURDUE-USA-2020-0164194

PATIENT
  Age: 90 Year
  Sex: Female

DRUGS (5)
  1. ZOPICLON [Concomitant]
     Active Substance: ZOPICLONE
     Dosage: 7.5 MG, DAILY (7.5 MG, 0?0?1?0, TABLETTEN)
     Route: 048
  2. TELMISARTAN. [Concomitant]
     Active Substance: TELMISARTAN
     Dosage: 40 MG, BID (40 MG, 1?0?1?0)
     Route: 048
  3. HYDROMORPHONE HCL (SIMILAR TO 19?892) [Suspect]
     Active Substance: HYDROMORPHONE HYDROCHLORIDE
     Indication: PRODUCT USED FOR UNKNOWN INDICATION
     Dosage: 4 MG, TID (4 MG, 1?0?1?1, RETARDKAPSELN)
     Route: 048
  4. BUDENOFALK [Concomitant]
     Active Substance: BUDESONIDE
     Dosage: 3 MG, TID (3 MG, 1?1?1?0)
     Route: 048
  5. METAMIZOL                          /06276702/ [Concomitant]
     Active Substance: METAMIZOLE
     Dosage: 40 GTT, QID (40 GTT, 1?1?1?1, TROPFEN)
     Route: 048

REACTIONS (5)
  - Back pain [Recovering/Resolving]
  - Fall [Recovering/Resolving]
  - Abdominal pain [Recovering/Resolving]
  - Fracture [Recovering/Resolving]
  - Constipation [Recovering/Resolving]
